FAERS Safety Report 11840624 (Version 1)
Quarter: 2015Q4

REPORT INFORMATION
  Report Type: Spontaneous
  Country: US (occurrence: None)
  Receive Date: 20151215
  Receipt Date: 20151215
  Transmission Date: 20160305
  Serious: Yes (Disabling)
  Sender: FDA-Public Use
  Company Number: None

PATIENT
  Age: 76 Year
  Sex: Female

DRUGS (6)
  1. MAGNESIUM + D [Concomitant]
  2. EYLEA [Suspect]
     Active Substance: AFLIBERCEPT
     Indication: MACULAR DEGENERATION
     Dosage: INJECTION IN EYE
  3. COMPLETE VITAMIN, C, [Concomitant]
  4. AMEDS [Concomitant]
  5. NIZATIDINE. [Concomitant]
     Active Substance: NIZATIDINE
  6. CALCIUM [Concomitant]
     Active Substance: CALCIUM

REACTIONS (7)
  - Musculoskeletal stiffness [None]
  - Arthritis [None]
  - Back pain [None]
  - Joint stiffness [None]
  - Gait disturbance [None]
  - Arthralgia [None]
  - Pain in extremity [None]

NARRATIVE: CASE EVENT DATE: 201501
